FAERS Safety Report 10027068 (Version 2)
Quarter: 2014Q2

REPORT INFORMATION
  Report Type: Spontaneous
  Country: FI (occurrence: FI)
  Receive Date: 20140321
  Receipt Date: 20140425
  Transmission Date: 20141212
  Serious: Yes (Other)
  Sender: FDA-Public Use
  Company Number: FI-JNJFOC-20140309838

PATIENT
  Sex: Female

DRUGS (5)
  1. REMICADE [Suspect]
     Indication: ANKYLOSING SPONDYLITIS
     Route: 042
     Dates: start: 20130920
  2. REMICADE [Suspect]
     Indication: ANKYLOSING SPONDYLITIS
     Route: 042
     Dates: start: 20050331
  3. REMICADE [Suspect]
     Indication: CROHN^S DISEASE
     Route: 042
     Dates: start: 20130920
  4. REMICADE [Suspect]
     Indication: CROHN^S DISEASE
     Route: 042
     Dates: start: 20050331
  5. SALAZOPYRIN EN [Concomitant]
     Indication: ANKYLOSING SPONDYLITIS
     Dosage: FREQUENCY: 2 DOSES TWICE.
     Route: 065
     Dates: start: 20020910

REACTIONS (2)
  - Desmoid tumour [Recovered/Resolved]
  - Disease recurrence [Unknown]
